FAERS Safety Report 6518233-7 (Version None)
Quarter: 2009Q4

REPORT INFORMATION
  Report Type: 
  Country: None (occurrence: None)
  Receive Date: 20091224
  Receipt Date: 20091218
  Transmission Date: 20100525
  Serious: Yes (Hospitalization, Congenital Anomaly)
  Sender: FDA-Public Use
  Company Number: DE-WYE-G05185909

PATIENT
  Sex: Male
  Weight: 2.42 kg

DRUGS (2)
  1. TREVILOR RETARD [Suspect]
     Indication: ANXIETY DISORDER
     Route: 064
     Dates: start: 20040801, end: 20090101
  2. TREVILOR RETARD [Suspect]
     Route: 064
     Dates: start: 20090101

REACTIONS (3)
  - PREMATURE BABY [None]
  - TACHYCARDIA FOETAL [None]
  - URINARY TRACT DISORDER [None]
